APPROVED DRUG PRODUCT: IMITREX STATDOSE
Active Ingredient: SUMATRIPTAN SUCCINATE
Strength: EQ 6MG BASE/0.5ML (EQ 12MG BASE/ML)
Dosage Form/Route: INJECTABLE;SUBCUTANEOUS
Application: N020080 | Product #003 | TE Code: AB
Applicant: GLAXOSMITHKLINE
Approved: Dec 23, 1996 | RLD: Yes | RS: Yes | Type: RX